FAERS Safety Report 12641581 (Version 1)
Quarter: 2016Q3

REPORT INFORMATION
  Report Type: Report from Study
  Country: CA (occurrence: CA)
  Receive Date: 20160810
  Receipt Date: 20160810
  Transmission Date: 20161109
  Serious: Yes (Other)
  Sender: FDA-Public Use
  Company Number: CA-009507513-1608CAN000933

PATIENT
  Age: 66 Year
  Sex: Male
  Weight: 70 kg

DRUGS (2)
  1. IVERMECTIN. [Suspect]
     Active Substance: IVERMECTIN
     Indication: STRONGYLOIDIASIS
     Dosage: 15 MG, QD
     Route: 048
     Dates: start: 20160725
  2. ALBENDAZOLE [Concomitant]
     Active Substance: ALBENDAZOLE
     Indication: STRONGYLOIDIASIS
     Dosage: 400 MG, BID
     Route: 048
     Dates: start: 20160723

REACTIONS (3)
  - Respiratory failure [Unknown]
  - Eosinophilia [Unknown]
  - Rash [Unknown]

NARRATIVE: CASE EVENT DATE: 20160728
